FAERS Safety Report 11323739 (Version 2)
Quarter: 2015Q3

REPORT INFORMATION
  Report Type: Other
  Country: US (occurrence: US)
  Receive Date: 20150730
  Receipt Date: 20150904
  Transmission Date: 20151125
  Serious: No
  Sender: FDA-Public Use
  Company Number: US-LUNDBECK-DKLU2001649

PATIENT
  Age: 6 Year
  Sex: Female

DRUGS (4)
  1. CANNABIDIOL [Interacting]
     Active Substance: CANNABIDIOL
     Indication: EPILEPSY
     Route: 065
  2. CANNABIDIOL [Interacting]
     Active Substance: CANNABIDIOL
     Route: 065
  3. VIGABATRIN (TABLET) [Concomitant]
     Active Substance: VIGABATRIN
     Route: 065
  4. CLOBAZAM [Suspect]
     Active Substance: CLOBAZAM
     Indication: EPILEPSY
     Dosage: 0.18 TO 2.24 MG/KG/DAY
     Route: 065

REACTIONS (2)
  - Drug interaction [Unknown]
  - Somnolence [Unknown]
